FAERS Safety Report 15898609 (Version 1)
Quarter: 2019Q1

REPORT INFORMATION
  Report Type: Spontaneous
  Country: US (occurrence: US)
  Receive Date: 20190201
  Receipt Date: 20190201
  Transmission Date: 20190417
  Serious: Yes (Other)
  Sender: FDA-Public Use
  Company Number: US-TEVA-2019-US-1005214

PATIENT
  Sex: Female

DRUGS (1)
  1. AMLODIPINE AND VALSARTAN TABLETS [Suspect]
     Active Substance: AMLODIPINE\VALSARTAN
     Indication: BLOOD PRESSURE MEASUREMENT
     Dosage: AMLODIPINE 5 MG+ VALSARTAN 160 MG
     Route: 065

REACTIONS (5)
  - Recalled product administered [Unknown]
  - Blood test abnormal [Unknown]
  - Non-Hodgkin^s lymphoma [Unknown]
  - Metastases to lymph nodes [Unknown]
  - Metastases to bone marrow [Unknown]

NARRATIVE: CASE EVENT DATE: 201801
